FAERS Safety Report 5948936-4 (Version None)
Quarter: 2008Q4

REPORT INFORMATION
  Report Type: 
  Country: None (occurrence: None)
  Receive Date: 20081111
  Receipt Date: 20081104
  Transmission Date: 20090506
  Serious: Yes (Life-Threatening, Hospitalization, Other)
  Sender: FDA-Public Use
  Company Number: GB-ABBOTT-08P-167-0482378-00

PATIENT
  Age: 28 Year
  Sex: Male

DRUGS (4)
  1. HUMIRA [Suspect]
     Indication: PSORIATIC ARTHROPATHY
     Dates: start: 20080812, end: 20081007
  2. BISOPROLOL FUMARATE [Concomitant]
     Indication: ATRIAL FIBRILLATION
  3. FLECAINIDE ACETATE [Concomitant]
     Indication: ATRIAL FIBRILLATION
  4. CLOPIDOGREL [Concomitant]
     Indication: DRUG USE FOR UNKNOWN INDICATION

REACTIONS (4)
  - ATRIAL FIBRILLATION [None]
  - CARDIAC ARREST [None]
  - HYPOXIC ENCEPHALOPATHY [None]
  - VENTRICULAR FIBRILLATION [None]
